FAERS Safety Report 5295658-1 (Version None)
Quarter: 2007Q2

REPORT INFORMATION
  Report Type: 
  Country: None (occurrence: None)
  Receive Date: 20070410
  Receipt Date: 20070410
  Transmission Date: 20071010
  Serious: Yes (Life-Threatening, Hospitalization)
  Sender: FDA-Public Use
  Company Number: None

PATIENT
  Sex: Female
  Weight: 46.3 kg

DRUGS (8)
  1. IBUPROFEN [Suspect]
     Indication: MUSCULOSKELETAL PAIN
     Dosage: 600 MG TID (PO)
     Route: 048
  2. RISEDRONATE SODIUM [Concomitant]
  3. LISINOPRIL [Concomitant]
  4. ATENOLOL [Concomitant]
  5. METOCLOPRAMIDE [Concomitant]
  6. TRIAMTERERE/HCTZ [Concomitant]
  7. OXYCODONE HCL [Concomitant]
  8. OMEPRAZOLE [Concomitant]

REACTIONS (5)
  - ABDOMINAL PAIN UPPER [None]
  - GASTRIC ULCER PERFORATION [None]
  - NAUSEA [None]
  - PERITONEAL DISORDER [None]
  - VOMITING [None]
